FAERS Safety Report 7585992-4 (Version None)
Quarter: 2011Q3

REPORT INFORMATION
  Report Type: 
  Country: None (occurrence: None)
  Receive Date: 20110701
  Receipt Date: 20110624
  Transmission Date: 20111222
  Serious: Yes (Life-Threatening)
  Sender: FDA-Public Use
  Company Number: FR-ASTELLAS-2011EU004186

PATIENT
  Age: 62 Year
  Sex: Male

DRUGS (3)
  1. PROGRAF [Suspect]
     Dosage: UNK
     Route: 048
     Dates: start: 20050101, end: 20091001
  2. PREDNISONE [Suspect]
     Dosage: UNK
     Route: 048
     Dates: start: 20050101
  3. CELLCEPT [Suspect]
     Dosage: UNK
     Route: 048
     Dates: start: 20050101

REACTIONS (2)
  - SQUAMOUS CELL CARCINOMA [None]
  - ACTINIC KERATOSIS [None]
